FAERS Safety Report 7412280-9 (Version None)
Quarter: 2011Q2

REPORT INFORMATION
  Report Type: 
  Country: None (occurrence: None)
  Receive Date: 20110413
  Receipt Date: 20110404
  Transmission Date: 20111010
  Serious: Yes (Hospitalization)
  Sender: FDA-Public Use
  Company Number: JP-ROCHE-768877

PATIENT
  Sex: Female
  Weight: 66 kg

DRUGS (12)
  1. ISODINE [Concomitant]
     Dosage: DRUG: ISODINE GARGLE, FORM: INCLUDE ASPECT, ROUTE: OROPHARINGEAL, NOTE: 3-4 TIMES A DAY
     Route: 050
  2. DIOVAN [Concomitant]
     Route: 048
     Dates: start: 20090611
  3. SIMULECT [Concomitant]
     Route: 041
     Dates: start: 20090206, end: 20090206
  4. SENNA LEAF [Concomitant]
     Dosage: SINGLE USE (ONE SAC ONCE)
     Route: 048
     Dates: start: 20090126
  5. ALOSENN [Concomitant]
     Dosage: SINGLE USE (ONE SAC ONCE)
     Route: 048
     Dates: start: 20090316
  6. MYCOPHENOLATE MOFETIL [Suspect]
     Indication: PROPHYLAXIS AGAINST TRANSPLANT REJECTION
     Route: 048
     Dates: start: 20090207
  7. DAIO-KANZO-TO [Concomitant]
     Dosage: SINGLE USE (ONE SAC ONCE)
     Route: 048
     Dates: start: 20090126
  8. PANTOSIN [Concomitant]
     Dosage: DOSAGE IS UNCERTAIN.
     Route: 048
     Dates: start: 20090409
  9. NEORAL [Concomitant]
     Route: 048
     Dates: start: 20101217
  10. PREDNISOLONE [Concomitant]
     Route: 048
     Dates: start: 20090928
  11. SIMULECT [Concomitant]
     Route: 041
     Dates: start: 20090210, end: 20090210
  12. MAGNESIUM OXIDE [Concomitant]
     Dosage: DOSAGE IS UNCERTAIN.
     Route: 048
     Dates: start: 20090409

REACTIONS (8)
  - OVARIAN ENLARGEMENT [None]
  - MYCOPLASMA INFECTION [None]
  - RASH [None]
  - CYSTITIS [None]
  - CHOLELITHIASIS [None]
  - IRON DEFICIENCY ANAEMIA [None]
  - URINARY TRACT INFECTION [None]
  - CYTOMEGALOVIRUS INFECTION [None]
